FAERS Safety Report 11320244 (Version 2)
Quarter: 2015Q3

REPORT INFORMATION
  Report Type: Spontaneous
  Country: JP (occurrence: JP)
  Receive Date: 20150729
  Receipt Date: 20150909
  Transmission Date: 20151125
  Serious: No
  Sender: FDA-Public Use
  Company Number: JP-009507513-1507JPN012718

PATIENT
  Age: 56 Year
  Sex: Male
  Weight: 52 kg

DRUGS (21)
  1. CAFFEINE. [Suspect]
     Active Substance: CAFFEINE
     Indication: POSTOPERATIVE ANALGESIA
     Dosage: 1 G X 3 TIMES/DAY AS CMCP
     Route: 048
     Dates: start: 20150703, end: 20150705
  2. AMLODIPINE BESYLATE. [Concomitant]
     Active Substance: AMLODIPINE BESYLATE
     Indication: HYPERTENSION
     Dosage: 5 MG, QD
     Route: 048
     Dates: start: 20150626
  3. SOLDEM 3A [Concomitant]
     Active Substance: CARBOHYDRATES\POTASSIUM CHLORIDE\SODIUM CHLORIDE\SODIUM LACTATE
     Indication: FLUID REPLACEMENT
     Dosage: 500 ML, QD
     Route: 041
     Dates: start: 20150602, end: 20150709
  4. VANCOMYCIN [Concomitant]
     Active Substance: VANCOMYCIN
     Indication: STAPHYLOCOCCAL INFECTION
     Dosage: 1 G, BID
     Route: 041
     Dates: start: 20150614, end: 20150715
  5. NEO-MINOPHAGEN C [Concomitant]
     Active Substance: AMMONIUM GLYCYRRHIZATE
     Indication: HEPATIC ENZYME INCREASED
     Dosage: 30 ML, QD
     Route: 041
     Dates: start: 20150716, end: 20150822
  6. CUBICIN [Suspect]
     Active Substance: DAPTOMYCIN
     Indication: STAPHYLOCOCCAL INFECTION
     Dosage: 300 MG, ONCE DAILY
     Route: 041
     Dates: start: 20150715, end: 20150717
  7. CHLORDIAZEPOXIDE [Suspect]
     Active Substance: CHLORDIAZEPOXIDE
     Indication: POSTOPERATIVE ANALGESIA
     Dosage: 1 G X 3 TIMES/DAY AS CMCP
     Route: 048
     Dates: start: 20150703, end: 20150705
  8. PROTERNOL-L [Concomitant]
     Indication: BRADYCARDIA
     Dosage: 0.01 Y/DAY, DIVIDED DOSE, FREQUENCY UNKNOWN
     Route: 041
     Dates: start: 20150609, end: 20150820
  9. ROBAXIN [Suspect]
     Active Substance: METHOCARBAMOL
     Indication: POSTOPERATIVE ANALGESIA
     Dosage: 1 G G X 3 TIMES/DAY AS CMCP
     Route: 048
     Dates: start: 20150703, end: 20150705
  10. PYRINAZIN [Suspect]
     Active Substance: ACETAMINOPHEN
     Indication: POSTOPERATIVE ANALGESIA
     Dosage: 1 G X 3 TIMES/DAY AS CMCP
     Route: 048
     Dates: start: 20150703, end: 20150705
  11. TAKEPRON [Concomitant]
     Active Substance: LANSOPRAZOLE
     Indication: PROPHYLAXIS AGAINST GASTROINTESTINAL ULCER
     Dosage: 15 MG, QD
     Route: 048
     Dates: start: 20150605
  12. BIOFERMIN R [Concomitant]
     Active Substance: BACILLUS SUBTILIS\LACTOBACILLUS ACIDOPHILUS\STREPTOCOCCUS FAECAIS
     Indication: DIARRHOEA
     Dosage: 1 G, TID
     Route: 048
     Dates: start: 20150608, end: 20150827
  13. BISOLVON [Concomitant]
     Active Substance: BROMHEXINE HYDROCHLORIDE
     Indication: SPUTUM RETENTION
     Dosage: 0.2 G, TID
     Route: 048
     Dates: start: 20150606
  14. POSTERISAN [Concomitant]
     Active Substance: LIDOCAINE
     Indication: GASTROINTESTINAL MUCOSAL EXFOLIATION
     Dosage: 2 G, BID
     Route: 054
     Dates: start: 20150609
  15. FINIBAX [Concomitant]
     Active Substance: DORIPENEM MONOHYDRATE
     Indication: WOUND INFECTION
     Dosage: 1 G, TID
     Route: 041
     Dates: start: 20150611, end: 20150707
  16. LIXIANA [Suspect]
     Active Substance: EDOXABAN TOSILATE MONOHYDRATE
     Indication: THROMBOSIS PROPHYLAXIS
     Dosage: 30 MG, QD
     Route: 048
     Dates: start: 20150711
  17. URSO [Concomitant]
     Active Substance: URSODIOL
     Indication: HEPATIC ENZYME INCREASED
     Dosage: 200 MG, TID
     Route: 048
     Dates: start: 20150619
  18. RISPERDAL [Concomitant]
     Active Substance: RISPERIDONE
     Indication: MENTAL DISORDER DUE TO A GENERAL MEDICAL CONDITION
     Dosage: 0.5 ML, QD
     Route: 048
     Dates: start: 20150605
  19. LINEZOLID. [Concomitant]
     Active Substance: LINEZOLID
     Indication: STAPHYLOCOCCAL INFECTION
     Dosage: DAILY DOSAGE UNKNOWN
     Route: 065
     Dates: start: 20150715
  20. AMBROXOL HYDROCHLORIDE [Concomitant]
     Active Substance: AMBROXOL HYDROCHLORIDE
     Indication: SPUTUM RETENTION
     Dosage: 5 ML, TID
     Route: 048
     Dates: start: 20150619
  21. MICARDIS [Concomitant]
     Active Substance: TELMISARTAN
     Indication: HYPERTENSION
     Dosage: 40 MG, QD
     Route: 048
     Dates: start: 20150629

REACTIONS (1)
  - Drug eruption [Recovering/Resolving]

NARRATIVE: CASE EVENT DATE: 20150716
